FAERS Safety Report 8322877-X (Version None)
Quarter: 2012Q2

REPORT INFORMATION
  Report Type: 
  Country: None (occurrence: None)
  Receive Date: 20120426
  Receipt Date: 20120418
  Transmission Date: 20120825
  Serious: Yes (Death, Hospitalization, Other)
  Sender: FDA-Public Use
  Company Number: TPA2012A02211

PATIENT
  Age: 8 Decade
  Sex: Male

DRUGS (1)
  1. ACTOS [Suspect]

REACTIONS (4)
  - MYOCARDIAL INFARCTION [None]
  - BLADDER CANCER [None]
  - THROMBOSIS [None]
  - CEREBROVASCULAR ACCIDENT [None]
